FAERS Safety Report 6818848-2 (Version None)
Quarter: 2010Q2

REPORT INFORMATION
  Report Type: 
  Country: None (occurrence: None)
  Receive Date: 20100630
  Receipt Date: 20100628
  Transmission Date: 20101027
  Serious: Yes (Life-Threatening, Other)
  Sender: FDA-Public Use
  Company Number: 2010SP035904

PATIENT
  Age: 45 Year
  Sex: Female

DRUGS (18)
  1. TEMODAL [Suspect]
     Indication: METASTATIC MALIGNANT MELANOMA
     Dosage: 200 MCG/M2;QD;PO, 50 MG;QD;PO
     Route: 048
     Dates: start: 20100325, end: 20100325
  2. TEMODAL [Suspect]
     Indication: METASTATIC MALIGNANT MELANOMA
     Dosage: 200 MCG/M2;QD;PO, 50 MG;QD;PO
     Route: 048
     Dates: start: 20100112
  3. TEMODAL [Suspect]
     Indication: METASTATIC MALIGNANT MELANOMA
     Dosage: 200 MCG/M2;QD;PO, 50 MG;QD;PO
     Route: 048
     Dates: start: 20100208
  4. TEMODAL [Suspect]
     Indication: METASTATIC MALIGNANT MELANOMA
     Dosage: 200 MCG/M2;QD;PO, 50 MG;QD;PO
     Route: 048
     Dates: start: 20100429
  5. TEMODAL [Suspect]
     Indication: METASTATIC MALIGNANT MELANOMA
     Dosage: 200 MCG/M2;QD;PO, 50 MG;QD;PO
     Route: 048
     Dates: start: 20100531
  6. KEPPRA [Concomitant]
  7. ZOLPIDEM [Concomitant]
  8. CORTANCYL [Concomitant]
  9. LEXOMIL [Concomitant]
  10. NEXIUM [Concomitant]
  11. ARIXTRA [Concomitant]
  12. DOLIPRANE [Concomitant]
  13. ALPRAZOLAM [Concomitant]
  14. ESCITALOPRAM OXALATE [Concomitant]
  15. AUGUMENTIN [Concomitant]
  16. GRANOCTE [Concomitant]
  17. ZOPHREN [Concomitant]
  18. ARANESP [Concomitant]

REACTIONS (2)
  - BONE MARROW FAILURE [None]
  - FEBRILE BONE MARROW APLASIA [None]
